FAERS Safety Report 11932479 (Version 2)
Quarter: 2016Q1

REPORT INFORMATION
  Report Type: Spontaneous
  Country: RU (occurrence: RU)
  Receive Date: 20160120
  Receipt Date: 20160202
  Transmission Date: 20160526
  Serious: Yes (Hospitalization, Other)
  Sender: FDA-Public Use
  Company Number: RU-ASTRAZENECA-2016SE03730

PATIENT
  Age: 60 Year
  Sex: Male

DRUGS (5)
  1. ENALAPRIL [Concomitant]
     Active Substance: ENALAPRIL
     Indication: HYPERTENSION
  2. GLIMEPIRIDE. [Concomitant]
     Active Substance: GLIMEPIRIDE
     Indication: TYPE 2 DIABETES MELLITUS
     Dates: start: 201512
  3. METFORMIN (GLICLZIDE) [Concomitant]
     Indication: TYPE 2 DIABETES MELLITUS
     Dates: end: 201512
  4. INSULIN [Concomitant]
     Active Substance: INSULIN NOS
     Indication: TYPE 2 DIABETES MELLITUS
     Dates: start: 201512, end: 201512
  5. FORXIGA [Suspect]
     Active Substance: DAPAGLIFLOZIN
     Indication: TYPE 2 DIABETES MELLITUS
     Route: 048
     Dates: start: 201512, end: 201512

REACTIONS (4)
  - Pollakiuria [Unknown]
  - Pyelonephritis [Unknown]
  - Diabetic ketoacidosis [Recovered/Resolved]
  - Orchitis [Recovered/Resolved]

NARRATIVE: CASE EVENT DATE: 201512
